FAERS Safety Report 24095487 (Version 1)
Quarter: 2024Q3

REPORT INFORMATION
  Report Type: Other
  Country: US (occurrence: US)
  Receive Date: 20240716
  Receipt Date: 20240716
  Transmission Date: 20241017
  Serious: Yes (Hospitalization, Other)
  Sender: APPCO PHARMA
  Company Number: US-Appco Pharma LLC-2159161

PATIENT
  Age: 58 Year
  Sex: Female

DRUGS (2)
  1. SILDENAFIL [Suspect]
     Active Substance: SILDENAFIL
     Indication: Systemic scleroderma
     Route: 065
  2. SILDENAFIL [Suspect]
     Active Substance: SILDENAFIL
     Indication: Pulmonary arterial hypertension

REACTIONS (2)
  - Treatment noncompliance [Unknown]
  - Acute respiratory failure [Unknown]
